FAERS Safety Report 21735135 (Version 4)
Quarter: 2023Q4

REPORT INFORMATION
  Report Type: Spontaneous
  Country: DE (occurrence: DE)
  Receive Date: 20221215
  Receipt Date: 20231212
  Transmission Date: 20240109
  Serious: Yes (Other)
  Sender: FDA-Public Use
  Company Number: DE-ROCHE-3240169

PATIENT
  Age: 42 Year
  Sex: Female

DRUGS (20)
  1. CYCLOPHOSPHAMIDE [Suspect]
     Active Substance: CYCLOPHOSPHAMIDE
     Indication: Grey zone lymphoma
     Dosage: UNK, CYCLIC (R-CHOP REGIMEN; 6 CYCLES WERE GIVEN)
     Route: 065
  2. VINCRISTINE [Suspect]
     Active Substance: VINCRISTINE
     Indication: Grey zone lymphoma
     Dosage: UNK, CYCLIC (R-CHOP REGIMEN; 6 CYCLES WERE GIVEN )
     Route: 065
  3. DOXORUBICIN [Suspect]
     Active Substance: DOXORUBICIN
     Indication: Grey zone lymphoma
     Dosage: UNK, CYCLIC (R-CHOP REGIMEN; 6 CYCLES WERE GIVEN)
     Route: 065
  4. RITUXIMAB [Suspect]
     Active Substance: RITUXIMAB
     Indication: Grey zone lymphoma
     Dosage: UNK, CYCLIC (R-CHOP REGIMEN; 6 CYCLES WERE GIVEN)
     Route: 065
  5. RITUXIMAB [Suspect]
     Active Substance: RITUXIMAB
     Dosage: UNK, CYCLIC, R-ICE REGIMEN; 2 CYCLES WERE GIVEN
     Route: 065
  6. RITUXIMAB [Suspect]
     Active Substance: RITUXIMAB
     Dosage: UNK, CYCLIC (R-DHAP REGIMEN; 2 CYCLES WERE GIVEN)
     Route: 065
  7. CARBOPLATIN [Suspect]
     Active Substance: CARBOPLATIN
     Indication: Grey zone lymphoma
     Dosage: UNK, CYCLIC (~R-ICE REGIMEN; 2 CYCLES WERE GIVEN )
     Route: 065
  8. CISPLATIN [Suspect]
     Active Substance: CISPLATIN
     Indication: Grey zone lymphoma
     Dosage: UNK UNK, CYCLIC (R-DHAP REGIMEN; 2 CYCLES WERE GIVEN)
     Route: 065
  9. DEXAMETHASONE [Suspect]
     Active Substance: DEXAMETHASONE
     Indication: Grey zone lymphoma
     Dosage: UNK UNK, CYCLIC (R-DHAP REGIMEN; 2 CYCLES WERE GIVEN)
     Route: 065
  10. ETOPOSIDE [Suspect]
     Active Substance: ETOPOSIDE
     Indication: Grey zone lymphoma
     Dosage: UNK UNK, CYCLIC (R-ICE REGIMEN; 2 CYCLES WERE GIVE)
     Route: 065
  11. ETOPOSIDE [Suspect]
     Active Substance: ETOPOSIDE
     Dosage: UNK (BEAM REGIMEN)
     Route: 065
  12. ARZERRA [Suspect]
     Active Substance: OFATUMUMAB
     Indication: Grey zone lymphoma
     Dosage: UNK
     Route: 065
  13. CYTARABINE [Suspect]
     Active Substance: CYTARABINE
     Indication: Grey zone lymphoma
     Dosage: UNK, BEAM REGIMEN
     Route: 065
  14. CYTARABINE [Suspect]
     Active Substance: CYTARABINE
     Dosage: UNK UNK, CYCLIC (R-DHAP REGIMEN; 2 CYCLES WERE GIVEN)
     Route: 065
  15. RIBAVIRIN [Suspect]
     Active Substance: RIBAVIRIN
     Indication: Hepatitis E
     Dosage: 800 MG, QD
     Route: 048
  16. PREDNISOLONE [Suspect]
     Active Substance: PREDNISOLONE
     Indication: Grey zone lymphoma
     Dosage: UNK, CYCLIC (R-CHOP REGIMEN; 6 CYCLES WERE GIVEN)
     Route: 065
  17. IFOSFAMIDE [Suspect]
     Active Substance: IFOSFAMIDE
     Indication: Grey zone lymphoma
     Dosage: UNK UNK, CYCLIC (R-ICE REGIMEN; 2 CYCLES WERE GIVE)
     Route: 065
  18. MELPHALAN [Suspect]
     Active Substance: MELPHALAN
     Indication: Grey zone lymphoma
     Dosage: UNK, BEAM REGIMEN
     Route: 065
  19. CARMUSTINE [Suspect]
     Active Substance: CARMUSTINE
     Indication: Grey zone lymphoma
     Dosage: UNK, BEAM REGIMEN
     Route: 065
  20. R DHAP [Concomitant]
     Indication: Product used for unknown indication
     Dosage: UNK UNK, CYCLIC (2 CYCLES)
     Route: 065

REACTIONS (5)
  - Hepatitis E [Unknown]
  - Therapy partial responder [Unknown]
  - Cytopenia [Unknown]
  - Product use issue [Unknown]
  - Off label use [Unknown]
